FAERS Safety Report 26108264 (Version 1)
Quarter: 2025Q4

REPORT INFORMATION
  Report Type: Spontaneous
  Country: US (occurrence: None)
  Receive Date: 20251201
  Receipt Date: 20251201
  Transmission Date: 20260117
  Serious: Yes (Other)
  Sender: FDA-CTU
  Company Number: None

PATIENT
  Age: 42 Year
  Sex: Female
  Weight: 61.2 kg

DRUGS (5)
  1. QULIPTA [Suspect]
     Active Substance: ATOGEPANT
     Indication: Migraine prophylaxis
     Dosage: FREQUENCY : DAILY;?
     Route: 048
     Dates: start: 20250915, end: 20250925
  2. WEGOVY [Concomitant]
     Active Substance: SEMAGLUTIDE
  3. TOPAMAX [Concomitant]
     Active Substance: TOPIRAMATE
  4. ESCITALOPRAM OXALATE [Concomitant]
     Active Substance: ESCITALOPRAM OXALATE
  5. BOTOX [Concomitant]
     Active Substance: ONABOTULINUMTOXINA

REACTIONS (1)
  - Constipation [None]

NARRATIVE: CASE EVENT DATE: 20250925
